FAERS Safety Report 22794867 (Version 2)
Quarter: 2023Q4

REPORT INFORMATION
  Report Type: Report from Study
  Country: US (occurrence: US)
  Receive Date: 20230807
  Receipt Date: 20231008
  Transmission Date: 20240110
  Serious: Yes (Hospitalization, Other)
  Sender: FDA-Public Use
  Company Number: US-TAKEDA-2023TUS069154

PATIENT
  Age: 67 Year
  Sex: Female
  Weight: 56.6 kg

DRUGS (66)
  1. TEDUGLUTIDE [Suspect]
     Active Substance: TEDUGLUTIDE
     Indication: Short-bowel syndrome
     Dosage: 1.5 MILLIGRAM, QD
     Route: 058
     Dates: start: 202302, end: 20230707
  2. TEDUGLUTIDE [Suspect]
     Active Substance: TEDUGLUTIDE
     Indication: Short-bowel syndrome
     Dosage: 1.5 MILLIGRAM, QD
     Route: 058
     Dates: start: 202302, end: 20230707
  3. TEDUGLUTIDE [Suspect]
     Active Substance: TEDUGLUTIDE
     Indication: Short-bowel syndrome
     Dosage: 1.5 MILLIGRAM, QD
     Route: 058
     Dates: start: 202302, end: 20230707
  4. TEDUGLUTIDE [Suspect]
     Active Substance: TEDUGLUTIDE
     Indication: Short-bowel syndrome
     Dosage: 1.5 MILLIGRAM, QD
     Route: 058
     Dates: start: 202302, end: 20230707
  5. TEDUGLUTIDE [Suspect]
     Active Substance: TEDUGLUTIDE
     Dosage: UNK UNK, QD
     Route: 058
     Dates: start: 20230220, end: 20230707
  6. TEDUGLUTIDE [Suspect]
     Active Substance: TEDUGLUTIDE
     Dosage: UNK UNK, QD
     Route: 058
     Dates: start: 20230220, end: 20230707
  7. TEDUGLUTIDE [Suspect]
     Active Substance: TEDUGLUTIDE
     Dosage: UNK UNK, QD
     Route: 058
     Dates: start: 20230220, end: 20230707
  8. TEDUGLUTIDE [Suspect]
     Active Substance: TEDUGLUTIDE
     Dosage: UNK UNK, QD
     Route: 058
     Dates: start: 20230220, end: 20230707
  9. ACETAMINOPHEN [Concomitant]
     Active Substance: ACETAMINOPHEN
     Dosage: 1 DOSAGE FORM, Q8HR
     Route: 048
  10. NORVASC [Concomitant]
     Active Substance: AMLODIPINE BESYLATE
     Dosage: 10 MILLIGRAM, QD
     Route: 048
  11. ARCALYST [Concomitant]
     Active Substance: RILONACEPT
     Dosage: 160 MILLIGRAM, 1/WEEK
     Route: 058
  12. Artificial tears [Concomitant]
     Dosage: 2 GTT DROPS, QD
     Route: 047
  13. ASPIRIN [Concomitant]
     Active Substance: ASPIRIN
     Dosage: 81 MILLIGRAM, QD
     Route: 048
  14. ROCALTROL [Concomitant]
     Active Substance: CALCITRIOL
     Dosage: 1 DOSAGE FORM, QOD
     Route: 048
  15. COREG [Concomitant]
     Active Substance: CARVEDILOL
     Dosage: 3.125 MILLIGRAM, BID
     Route: 048
  16. VITAMIN D3 [Concomitant]
     Active Substance: CHOLECALCIFEROL
     Dosage: 1 DOSAGE FORM, QOD
     Route: 048
  17. VITAMIN B12 [Concomitant]
     Active Substance: CYANOCOBALAMIN
     Dosage: 1000 MICROGRAM, MONTHLY
     Route: 030
  18. VOLTAREN [Concomitant]
     Active Substance: DICLOFENAC SODIUM
     Dosage: 2 GRAM
     Route: 065
  19. BENADRYL [Concomitant]
     Active Substance: DIPHENHYDRAMINE HYDROCHLORIDE
     Dosage: 50 MILLIGRAM, Q6HR
     Route: 048
  20. ESTRACE [Concomitant]
     Active Substance: ESTRADIOL
     Dosage: 1 MILLIGRAM, QD
     Route: 048
  21. ZETIA [Concomitant]
     Active Substance: EZETIMIBE
     Dosage: 10 MILLIGRAM, QD
     Route: 048
  22. PEPCID [Concomitant]
     Active Substance: FAMOTIDINE
     Dosage: 10 MILLIGRAM, QD
     Route: 048
  23. FLONASE [Concomitant]
     Active Substance: FLUTICASONE PROPIONATE
     Dosage: UNK UNK, QD
     Route: 055
  24. NEURONTIN [Concomitant]
     Active Substance: GABAPENTIN
     Dosage: 1 DOSAGE FORM, TID
     Route: 048
  25. LEVSIN [Concomitant]
     Active Substance: HYOSCYAMINE SULFATE
     Dosage: 125 MICROGRAM, Q8HR
     Route: 060
  26. ATROVENT [Concomitant]
     Active Substance: IPRATROPIUM BROMIDE
     Dosage: UNK UNK, BID
     Route: 055
  27. IMDUR [Concomitant]
     Active Substance: ISOSORBIDE MONONITRATE
     Dosage: 120 MILLIGRAM, QD
     Route: 048
  28. SYNTHROID [Concomitant]
     Active Substance: LEVOTHYROXINE SODIUM
     Dosage: 125 MICROGRAM, QD
     Route: 048
  29. MELATONIN [Concomitant]
     Active Substance: MELATONIN
     Dosage: 10 MILLIGRAM, QD
     Route: 048
  30. REGLAN [Concomitant]
     Active Substance: METOCLOPRAMIDE HYDROCHLORIDE
     Dosage: 10 MILLIGRAM, TID
     Route: 048
  31. CELLCEPT [Concomitant]
     Active Substance: MYCOPHENOLATE MOFETIL
     Dosage: 3 DOSAGE FORM, QD
     Route: 065
  32. NARCAN [Concomitant]
     Active Substance: NALOXONE HYDROCHLORIDE
     Dosage: UNK
     Route: 065
  33. PRILOSEC [Concomitant]
     Active Substance: OMEPRAZOLE MAGNESIUM
     Dosage: 20 MILLIGRAM, QD
     Route: 048
  34. DELTASONE [Concomitant]
     Active Substance: PREDNISONE
     Dosage: 7.5 MILLIGRAM, QD
     Route: 048
  35. PROBIOTICS NOS [Concomitant]
     Active Substance: PROBIOTICS NOS
     Dosage: 1 DOSAGE FORM, QD
     Route: 048
  36. COMPAZINE [Concomitant]
     Active Substance: PROCHLORPERAZINE MALEATE
     Indication: Nausea
     Dosage: 25 MILLIGRAM, Q12H
     Route: 054
  37. COMPAZINE [Concomitant]
     Active Substance: PROCHLORPERAZINE MALEATE
     Indication: Vomiting
  38. MAXALT [Concomitant]
     Active Substance: RIZATRIPTAN BENZOATE
     Indication: Migraine
     Dosage: 10 MILLIGRAM, Q2HR
     Route: 048
  39. CRESTOR [Concomitant]
     Active Substance: ROSUVASTATIN CALCIUM
     Dosage: 1 DOSAGE FORM, QD
     Route: 048
  40. ZOLOFT [Concomitant]
     Active Substance: SERTRALINE HYDROCHLORIDE
     Dosage: 100 MILLIGRAM, QD
     Route: 048
  41. SODIUM BICARBONATE [Concomitant]
     Active Substance: SODIUM BICARBONATE
     Dosage: 650 MILLIGRAM, TID
     Route: 048
  42. SODIUM CHLORIDE [Concomitant]
     Active Substance: SODIUM CHLORIDE
     Dosage: 1000 MILLILITER, QD
     Route: 042
  43. CARAFATE [Concomitant]
     Active Substance: SUCRALFATE
     Dosage: 10 MILLILITER, BID
     Route: 048
  44. ZANAFLEX [Concomitant]
     Active Substance: TIZANIDINE HYDROCHLORIDE
     Dosage: 1 DOSAGE FORM, QD
     Route: 048
  45. TOPAMAX [Concomitant]
     Active Substance: TOPIRAMATE
     Dosage: 100 MILLIGRAM, QD
     Route: 048
  46. DESYREL [Concomitant]
     Active Substance: TRAZODONE HYDROCHLORIDE
     Dosage: 150 MILLIGRAM, QD
     Route: 048
  47. TUMS [Concomitant]
     Active Substance: CALCIUM CARBONATE
     Indication: Dyspepsia
     Dosage: 1 DOSAGE FORM, QD
     Route: 048
  48. AMLODIPINE BESYLATE [Concomitant]
     Active Substance: AMLODIPINE BESYLATE
     Dosage: 10 MILLIGRAM, QD
     Route: 048
     Dates: start: 20170913
  49. ASPIRIN [Concomitant]
     Active Substance: ASPIRIN
     Dosage: 81 MILLIGRAM, QD
     Route: 065
     Dates: start: 20160927
  50. BENTYL [Concomitant]
     Active Substance: DICYCLOMINE HYDROCHLORIDE
     Dosage: 10 MILLIGRAM, QD
     Route: 065
     Dates: start: 20190729
  51. CALCITRIOL [Concomitant]
     Active Substance: CALCITRIOL
     Dosage: 0.25 MICROGRAM
     Route: 048
  52. CALCIUM [Concomitant]
     Active Substance: CALCIUM
     Dosage: 2 DOSAGE FORM, BID
     Route: 048
  53. CARVEDILOL [Concomitant]
     Active Substance: CARVEDILOL
     Dosage: 12.5 MILLIGRAM, BID
     Route: 048
  54. FERRIC POLYSACCHARIDE COMPLEX [Concomitant]
     Active Substance: FERRIC POLYSACCHARIDE COMPLEX
     Dosage: 150 MILLIGRAM, QD
     Route: 048
  55. GABAPENTIN [Concomitant]
     Active Substance: GABAPENTIN
     Dosage: 300 MILLIGRAM, QD
     Route: 048
  56. HYPROMELLOSES [Concomitant]
     Active Substance: HYPROMELLOSES
     Dosage: 1 DOSAGE FORM, BID
     Route: 065
  57. LEVOTHYROXINE SODIUM [Concomitant]
     Active Substance: LEVOTHYROXINE SODIUM
     Dosage: 50 MICROGRAM, QD
     Route: 048
  58. MAGNESIUM [Concomitant]
     Active Substance: MAGNESIUM
     Dosage: 400 MILLIGRAM, QD
     Route: 048
  59. SODIUM CHLORIDE [Concomitant]
     Active Substance: SODIUM CHLORIDE
  60. PHENERGAN [Concomitant]
     Active Substance: PROMETHAZINE HYDROCHLORIDE
     Dosage: 25 MILLIGRAM, QD
     Route: 065
  61. PREMARIN [Concomitant]
     Active Substance: ESTROGENS, CONJUGATED
     Dosage: UNK
  62. PREVACID [Concomitant]
     Active Substance: LANSOPRAZOLE
     Dosage: 30 MILLIGRAM, BID
     Route: 048
  63. SOLIFENACIN SUCCINATE [Concomitant]
     Active Substance: SOLIFENACIN SUCCINATE
     Dosage: 5 MILLIGRAM, QD
     Route: 048
  64. TIZANIDINE HYDROCHLORIDE [Concomitant]
     Active Substance: TIZANIDINE HYDROCHLORIDE
     Dosage: 2 MILLIGRAM, QD
     Route: 048
  65. TRAMADOL HCL [Concomitant]
     Active Substance: TRAMADOL HYDROCHLORIDE
     Dosage: 2 DOSAGE FORM
     Route: 065
  66. TYLENOL [Concomitant]
     Active Substance: ACETAMINOPHEN
     Dosage: 2 DOSAGE FORM, BID
     Route: 065

REACTIONS (8)
  - Small intestinal obstruction [Recovered/Resolved]
  - Cardiomyopathy [Recovering/Resolving]
  - Acute kidney injury [Recovering/Resolving]
  - Hypothyroidism [Recovering/Resolving]
  - Malnutrition [Recovering/Resolving]
  - Type V hyperlipidaemia [Recovering/Resolving]
  - Pain [Recovering/Resolving]
  - Abdominal pain [Recovering/Resolving]

NARRATIVE: CASE EVENT DATE: 20230704
